FAERS Safety Report 7937504-0 (Version None)
Quarter: 2011Q4

REPORT INFORMATION
  Report Type: 
  Country: None (occurrence: None)
  Receive Date: 20111123
  Receipt Date: 20111116
  Transmission Date: 20120403
  Serious: Yes (Hospitalization)
  Sender: FDA-Public Use
  Company Number: IT-BAXTER-2011BH036512

PATIENT
  Age: 69 Year
  Sex: Male

DRUGS (9)
  1. ZOFRAN [Concomitant]
     Indication: VOMITING
     Route: 040
     Dates: start: 20110920, end: 20111031
  2. PANTOPRAZOLE SODIUM [Concomitant]
     Indication: GASTROOESOPHAGEAL REFLUX PROPHYLAXIS
     Route: 048
     Dates: start: 20110919, end: 20111031
  3. LEVOLEUCOVORIN CALCIUM [Suspect]
     Indication: COLON CANCER
     Route: 042
     Dates: start: 20110920, end: 20110927
  4. SIMVASTATIN [Concomitant]
     Indication: DYSLIPIDAEMIA
     Route: 048
     Dates: start: 20110919, end: 20111031
  5. ALLOPURINOL [Concomitant]
     Indication: HYPERURICAEMIA
     Route: 048
     Dates: start: 20110930, end: 20111031
  6. IRINOTECAN HCL [Suspect]
     Indication: COLON CANCER
     Route: 042
     Dates: start: 20110920, end: 20110927
  7. FLUOROURACIL [Suspect]
     Indication: COLON CANCER
     Route: 042
     Dates: start: 20110920, end: 20110927
  8. DECADRON                                /NET/ [Concomitant]
     Indication: VOMITING
     Route: 040
     Dates: start: 20110920, end: 20111031
  9. STERILE WATER FOR INJECTION IN PLASTIC CONTAINER [Suspect]
     Indication: MEDICATION DILUTION
     Route: 065
     Dates: start: 20110920, end: 20110927

REACTIONS (6)
  - FEBRILE NEUTROPENIA [None]
  - SEPSIS [None]
  - LEUKOPENIA [None]
  - DIARRHOEA [None]
  - ORAL CANDIDIASIS [None]
  - DYSPHAGIA [None]
